FAERS Safety Report 9919571 (Version 1)
Quarter: 2014Q1

REPORT INFORMATION
  Report Type: Spontaneous
  Country: FR (occurrence: FR)
  Receive Date: 20140224
  Receipt Date: 20140224
  Transmission Date: 20141002
  Serious: Yes (Hospitalization)
  Sender: FDA-Public Use
  Company Number: FR-MALLINCKRODT-T201401318

PATIENT
  Age: 53 Year
  Sex: Male

DRUGS (1)
  1. OPTIJECT 300 [Suspect]
     Indication: COMPUTERISED TOMOGRAM
     Dosage: 90 ML, SINGLE
     Route: 065
     Dates: start: 20140212, end: 20140212

REACTIONS (2)
  - Hypersensitivity [Unknown]
  - Palpitations [Recovered/Resolved]
